FAERS Safety Report 5126404-X (Version None)
Quarter: 2006Q3

REPORT INFORMATION
  Report Type: 
  Country: None (occurrence: None)
  Receive Date: 20060828
  Receipt Date: 20050729
  Transmission Date: 20061208
  Serious: Yes (Hospitalization)
  Sender: FDA-Public Use
  Company Number: 27086

PATIENT
  Age: 63 Year
  Sex: Female

DRUGS (5)
  1. TAMBOCOR [Suspect]
     Indication: ATRIAL FIBRILLATION
     Dosage: (100 MG,2 IN 1 DAY(S)),ORAL
     Route: 048
     Dates: start: 20050211, end: 20050615
  2. VERELAN [Suspect]
     Dates: start: 20050101, end: 20050724
  3. LOPRESSOR [Suspect]
  4. WARFARIN SODIUM [Suspect]
  5. SOTALOL HYDROCHLORIDE [Suspect]

REACTIONS (7)
  - CARDIOMEGALY [None]
  - FATIGUE [None]
  - HEPATIC ENZYME INCREASED [None]
  - HEPATIC PAIN [None]
  - HYPOAESTHESIA [None]
  - OEDEMA PERIPHERAL [None]
  - VITREOUS FLOATERS [None]
